FAERS Safety Report 17405702 (Version 1)
Quarter: 2020Q1

REPORT INFORMATION
  Report Type: Spontaneous
  Country: US (occurrence: US)
  Receive Date: 20200127
  Receipt Date: 20200127
  Transmission Date: 20200409
  Serious: Yes (Other)
  Sender: FDA-Public Use
  Company Number: None

PATIENT
  Age: 59 Year
  Sex: Female
  Weight: 95.25 kg

DRUGS (1)
  1. ASPERCREME WITH LIDOCAINE [Suspect]
     Active Substance: LIDOCAINE
     Indication: CHEMICAL BURN

REACTIONS (7)
  - Blister [None]
  - Chills [None]
  - Skin indentation [None]
  - Localised infection [None]
  - Chemical burn [None]
  - Product complaint [None]
  - Pyrexia [None]

NARRATIVE: CASE EVENT DATE: 20190701
